FAERS Safety Report 25316623 (Version 1)
Quarter: 2025Q2

REPORT INFORMATION
  Report Type: Spontaneous
  Country: US (occurrence: US)
  Receive Date: 20250515
  Receipt Date: 20250515
  Transmission Date: 20250716
  Serious: Yes (Other)
  Sender: NOVO NORDISK
  Company Number: US-NOVOPROD-1427944

PATIENT
  Sex: Female
  Weight: 72.562 kg

DRUGS (1)
  1. OZEMPIC [Suspect]
     Active Substance: SEMAGLUTIDE
     Indication: Weight control

REACTIONS (8)
  - Lyme disease [Unknown]
  - Relapsing fever [Unknown]
  - Rheumatoid arthritis [Unknown]
  - Haemochromatosis [Unknown]
  - Cystitis interstitial [Unknown]
  - Pudendal canal syndrome [Unknown]
  - Weight increased [Unknown]
  - Product used for unknown indication [Unknown]
